FAERS Safety Report 11145498 (Version 1)
Quarter: 2015Q2

REPORT INFORMATION
  Report Type: Spontaneous
  Country: US (occurrence: None)
  Receive Date: 20150527
  Receipt Date: 20150527
  Transmission Date: 20150821
  Serious: Yes (Hospitalization)
  Sender: FDA-Public Use
  Company Number: None

PATIENT
  Age: 41 Year
  Sex: Female
  Weight: 70 kg

DRUGS (12)
  1. CALCIUM [Concomitant]
     Active Substance: CALCIUM
  2. CLONAZEPAM (KLONOPIN) [Concomitant]
  3. FAMOTIDINE (PEPCID) [Concomitant]
  4. PRAVACHOL [Concomitant]
     Active Substance: PRAVASTATIN SODIUM
  5. DIVALPROEX [Suspect]
     Active Substance: DIVALPROEX SODIUM
     Indication: SEIZURE
     Route: 048
     Dates: start: 20150508, end: 20150521
  6. FOSAMAX [Concomitant]
     Active Substance: ALENDRONATE SODIUM
  7. DIVALPROEX (DEPAKOTE) [Concomitant]
  8. VITAMIN D3, (VITAMIND-3) .? [Concomitant]
  9. LATANOPROST (XALATAN) [Concomitant]
  10. VERAPAMIL (VERELAN PM) [Concomitant]
  11. CHOLECALCIFEROL [Concomitant]
     Active Substance: CHOLECALCIFEROL
  12. TOPIRAMATE (TOPAMAX) [Concomitant]

REACTIONS (3)
  - Hepatic cirrhosis [None]
  - Hyperammonaemic encephalopathy [None]
  - Drug withdrawal syndrome [None]

NARRATIVE: CASE EVENT DATE: 20150518
